FAERS Safety Report 18856943 (Version 7)
Quarter: 2022Q3

REPORT INFORMATION
  Report Type: Spontaneous
  Country: US (occurrence: US)
  Receive Date: 20210208
  Receipt Date: 20220804
  Transmission Date: 20221027
  Serious: Yes (Hospitalization, Other)
  Sender: FDA-Public Use
  Company Number: US-SA-SAC20210204001838

PATIENT
  Age: 77 Year
  Sex: Female

DRUGS (36)
  1. DUPIXENT [Suspect]
     Active Substance: DUPILUMAB
     Indication: Dermatitis atopic
     Dosage: 300 MG, QOW
     Route: 058
     Dates: start: 20200821
  2. DUPIXENT [Suspect]
     Active Substance: DUPILUMAB
     Indication: Dermatitis atopic
     Dosage: 300 MG, QOW
     Route: 058
     Dates: start: 20200821
  3. CLARITIN-D 12 HOUR [Concomitant]
     Active Substance: LORATADINE\PSEUDOEPHEDRINE SULFATE
     Dosage: UNK
  4. AMITRIPTYLINE [Concomitant]
     Active Substance: AMITRIPTYLINE
     Dosage: UNK
  5. AMITRIPTYLINE [Concomitant]
     Active Substance: AMITRIPTYLINE
  6. LASIX [Concomitant]
     Active Substance: FUROSEMIDE
     Dosage: UNK
  7. ABILIFY [Concomitant]
     Active Substance: ARIPIPRAZOLE
  8. ALEVE [Concomitant]
     Active Substance: NAPROXEN SODIUM
  9. EFFEXOR [Concomitant]
     Active Substance: VENLAFAXINE HYDROCHLORIDE
  10. FISH OIL [Concomitant]
     Active Substance: FISH OIL
  11. LACTULOSE [Concomitant]
     Active Substance: LACTULOSE
  12. MUCINEX [Concomitant]
     Active Substance: GUAIFENESIN
  13. VITAMINS NOS [Concomitant]
     Active Substance: VITAMINS
  14. MINERALS\VITAMINS [Concomitant]
     Active Substance: MINERALS\VITAMINS
  15. SYNTHROID [Concomitant]
     Active Substance: LEVOTHYROXINE SODIUM
  16. TYLENOL [Concomitant]
     Active Substance: ACETAMINOPHEN
  17. VITAMIN D3 [Concomitant]
     Active Substance: CHOLECALCIFEROL
  18. ZINC [Concomitant]
     Active Substance: ZINC
  19. ZOFRAN [Concomitant]
     Active Substance: ONDANSETRON HYDROCHLORIDE
  20. ONDANSETRON HCL [Concomitant]
     Active Substance: ONDANSETRON HYDROCHLORIDE
  21. CLOBETASOL PROPIONATE [Concomitant]
     Active Substance: CLOBETASOL PROPIONATE
  22. NYSTATIN;TRIAMCINOLONE [Concomitant]
  23. OFEV [Concomitant]
     Active Substance: NINTEDANIB
  24. DOTTI [Concomitant]
     Active Substance: ESTRADIOL
  25. ARIPIPRAZOLE [Concomitant]
     Active Substance: ARIPIPRAZOLE
  26. CLONAZEPAM [Concomitant]
     Active Substance: CLONAZEPAM
  27. VENLAFAXINE HCL [Concomitant]
     Active Substance: VENLAFAXINE HYDROCHLORIDE
  28. ESCITALOPRAM OXALATE [Concomitant]
     Active Substance: ESCITALOPRAM OXALATE
  29. HYDROMORPHONE HCL [Concomitant]
     Active Substance: HYDROMORPHONE HYDROCHLORIDE
  30. FLOVENT HFA [Concomitant]
     Active Substance: FLUTICASONE PROPIONATE
  31. ALBUTEROL SULFATE [Concomitant]
     Active Substance: ALBUTEROL SULFATE
  32. EPINEPHRINE [Concomitant]
     Active Substance: EPINEPHRINE
  33. VITAMIN B COMPLEX [Concomitant]
     Active Substance: CYANOCOBALAMIN\DEXPANTHENOL\NIACINAMIDE\PYRIDOXINE HYDROCHLORIDE\RIBOFLAVIN 5^-PHOSPHATE SODIUM\THIA
  34. SENNA PLUS [SENNA ALEXANDRINA] [Concomitant]
  35. MAGNESIUM [Concomitant]
     Active Substance: MAGNESIUM
  36. VITAMIN C [Concomitant]
     Active Substance: ASCORBIC ACID

REACTIONS (29)
  - Facial bones fracture [Unknown]
  - Rib fracture [Unknown]
  - Upper limb fracture [Unknown]
  - Anaphylactic reaction [Unknown]
  - Facial bones fracture [Unknown]
  - Fall [Unknown]
  - Loss of consciousness [Unknown]
  - Occipital neuralgia [Unknown]
  - Concussion [Unknown]
  - Sleep apnoea syndrome [Unknown]
  - Memory impairment [Unknown]
  - Post-traumatic stress disorder [Unknown]
  - Muscular weakness [Unknown]
  - Neck pain [Unknown]
  - Lip injury [Unknown]
  - Nerve compression [Unknown]
  - Eye irritation [Unknown]
  - Fatigue [Unknown]
  - Oxygen saturation decreased [Unknown]
  - Rehabilitation therapy [Unknown]
  - Head discomfort [Unknown]
  - Limb discomfort [Unknown]
  - Hand fracture [Unknown]
  - Upper limb fracture [Unknown]
  - Lower limb fracture [Unknown]
  - Pain in extremity [Unknown]
  - Headache [Unknown]
  - Arthralgia [Unknown]
  - Inappropriate schedule of product administration [Unknown]
